FAERS Safety Report 14822423 (Version 1)
Quarter: 2018Q2

REPORT INFORMATION
  Report Type: Spontaneous
  Country: FR (occurrence: FR)
  Receive Date: 20180427
  Receipt Date: 20180427
  Transmission Date: 20180711
  Serious: Yes (Other)
  Sender: FDA-Public Use
  Company Number: FR-PFIZER INC-2018169147

PATIENT
  Age: 49 Year
  Sex: Male
  Weight: 93 kg

DRUGS (7)
  1. LEVOTHYROX [Suspect]
     Active Substance: LEVOTHYROXINE
     Indication: HYPOTHYROIDISM
     Dosage: 1 DF, 1X/DAY (TABLET CAN BE CUT)
     Route: 048
  2. FLUOXETINE HCL [Suspect]
     Active Substance: FLUOXETINE HYDROCHLORIDE
     Indication: DEPRESSION
     Dosage: 20 MG, 1X/DAY
     Route: 048
  3. XARELTO [Suspect]
     Active Substance: RIVAROXABAN
     Indication: PULMONARY EMBOLISM
     Dosage: 1 DF, 1X/DAY (TABLET CAN BE CUT)
     Route: 048
     Dates: start: 20151211
  4. XANAX [Suspect]
     Active Substance: ALPRAZOLAM
     Indication: DEPRESSION
     Dosage: 1 TABLET, 1X/DAY (TABLET CAN BE CUT)
     Route: 048
  5. PERMIXON [Suspect]
     Active Substance: HERBALS\SAW PALMETTO
     Indication: BENIGN PROSTATIC HYPERPLASIA
     Dosage: 1 DF, 1X/DAY
     Route: 048
  6. INNOHEP [Concomitant]
     Active Substance: TINZAPARIN SODIUM
     Indication: THROMBOSIS PROPHYLAXIS
     Dosage: UNK
     Route: 058
     Dates: start: 2012, end: 20151211
  7. LOXAPAC [Suspect]
     Active Substance: LOXAPINE
     Indication: DEPRESSION
     Dosage: 1 DF, 1X/DAY
     Route: 048
     Dates: start: 2006

REACTIONS (2)
  - Cholestasis [Not Recovered/Not Resolved]
  - Hepatocellular injury [Recovered/Resolved]

NARRATIVE: CASE EVENT DATE: 20150904
